FAERS Safety Report 5580221-5 (Version None)
Quarter: 2007Q4

REPORT INFORMATION
  Report Type: 
  Country: None (occurrence: None)
  Receive Date: 20071231
  Receipt Date: 20071231
  Transmission Date: 20080405
  Serious: No
  Sender: FDA-Public Use
  Company Number: None

PATIENT
  Age: 45 Year
  Sex: Female

DRUGS (1)
  1. WELLBUTRIN XL [Suspect]
     Indication: DEPRESSION
     Dosage: 300 MG 1 DAILY BY MOUTH
     Route: 048
     Dates: start: 20071001, end: 20071113

REACTIONS (3)
  - DEPRESSION [None]
  - INSOMNIA [None]
  - WEIGHT INCREASED [None]
